FAERS Safety Report 4931729-4 (Version None)
Quarter: 2006Q1

REPORT INFORMATION
  Report Type: 
  Country: None (occurrence: None)
  Receive Date: 20060106
  Receipt Date: 20051109
  Transmission Date: 20060701
  Serious: No
  Sender: FDA-Public Use
  Company Number: 200512507BWH

PATIENT
  Sex: Male

DRUGS (1)
  1. LEVITRA [Suspect]
     Indication: PREMATURE EJACULATION
     Dosage: ORAL
     Route: 048
     Dates: start: 20051108

REACTIONS (1)
  - PREMATURE EJACULATION [None]
